FAERS Safety Report 14967269 (Version 1)
Quarter: 2018Q2

REPORT INFORMATION
  Report Type: Report from Study
  Country: IR (occurrence: IR)
  Receive Date: 20180604
  Receipt Date: 20180604
  Transmission Date: 20180711
  Serious: Yes (Other)
  Sender: FDA-Public Use
  Company Number: IR-CHEPLA-C20180155

PATIENT

DRUGS (4)
  1. ATO (ARSENIC TRIOXIDE) [Suspect]
     Active Substance: ARSENIC TRIOXIDE
     Indication: ACUTE PROMYELOCYTIC LEUKAEMIA
     Dosage: INITIAL: 0.15 MG/KG/DAY IN 500 ML N/S WAS I.V. INFUSED OVER 2 H TILL MORPHOLOGICAL CR
     Route: 042
  2. ATO (ARSENIC TRIOXIDE) [Suspect]
     Active Substance: ARSENIC TRIOXIDE
     Indication: ACUTE PROMYELOCYTIC LEUKAEMIA
     Dosage: CONSOLIDATION: 2-H INFUSION OF ATO AT 0.15 MG/KG/DAY IN WEEK DAYS EXCEPT FRIDAYS
     Route: 042
  3. ATRA [Suspect]
     Active Substance: TRETINOIN
     Indication: ACUTE PROMYELOCYTIC LEUKAEMIA
     Dosage: INITIAL: 45 MG/M^2/DAY TILL COMPLETE REMISSION
     Route: 065
  4. ATRA [Suspect]
     Active Substance: TRETINOIN
     Indication: ACUTE PROMYELOCYTIC LEUKAEMIA
     Dosage: CONSOLIDATION: 45 MG/M^2/DAY ATRA FOR 14DAYS: OUT OF EVERY 28-DAY COURSE AND ALSO DURING 28-DAY REST
     Route: 065

REACTIONS (8)
  - Disseminated intravascular coagulation [None]
  - Infection [Unknown]
  - Drug intolerance [None]
  - Acute promyelocytic leukaemia differentiation syndrome [Recovered/Resolved]
  - Hepatic function abnormal [Unknown]
  - Hepatotoxicity [None]
  - Nephropathy toxic [None]
  - Renal impairment [Unknown]
